FAERS Safety Report 9491496 (Version 1)
Quarter: 2013Q3

REPORT INFORMATION
  Report Type: Spontaneous
  Country: JM (occurrence: None)
  Receive Date: 20130827
  Receipt Date: 20130827
  Transmission Date: 20140515
  Serious: Yes (Death, Hospitalization)
  Sender: FDA-Public Use
  Company Number: FK201303462

PATIENT
  Age: 22 Year
  Sex: Female

DRUGS (1)
  1. CLINDAMYCIN (MANUFACTURER UNKNOWN) (CLINDAMYCIN) (CLINDAMYCIN) [Suspect]
     Indication: TOOTH ABSCESS

REACTIONS (6)
  - Acute respiratory distress syndrome [None]
  - Bacterial sepsis [None]
  - Megacolon [None]
  - Intestinal perforation [None]
  - Pseudomembranous colitis [None]
  - Clostridium difficile infection [None]
